FAERS Safety Report 4283181-2 (Version None)
Quarter: 2004Q1

REPORT INFORMATION
  Report Type: 
  Country: None (occurrence: None)
  Receive Date: 20040121
  Receipt Date: 20040105
  Transmission Date: 20041129
  Serious: Yes (Life-Threatening, Hospitalization)
  Sender: FDA-Public Use
  Company Number: 2003-03281

PATIENT
  Age: 70 Year
  Sex: Male

DRUGS (1)
  1. IMMUCYST (BCG - IT (CONNAUGHT)) AVENTIS PASTEUR LTD., C1727AC, I7 [Suspect]
     Indication: BLADDER CANCER
     Dosage: (81.0 MG) B. IN., BLADDER
     Dates: start: 20031106

REACTIONS (16)
  - BLOOD IRON DECREASED [None]
  - BOVINE TUBERCULOSIS [None]
  - CHOLESTASIS [None]
  - DISSEMINATED TUBERCULOSIS [None]
  - FIBRIN D DIMER INCREASED [None]
  - HAEMOGLOBIN DECREASED [None]
  - HEADACHE [None]
  - HEPATITIS [None]
  - HYPERTRIGLYCERIDAEMIA [None]
  - LUNG DISORDER [None]
  - LYMPHOPENIA [None]
  - PNEUMONIA [None]
  - PYREXIA [None]
  - SERUM FERRITIN INCREASED [None]
  - THROMBOCYTOPENIA [None]
  - WEIGHT DECREASED [None]
